FAERS Safety Report 5625341-1 (Version None)
Quarter: 2008Q1

REPORT INFORMATION
  Report Type: 
  Country: None (occurrence: None)
  Receive Date: 20080211
  Receipt Date: 20080204
  Transmission Date: 20080703
  Serious: Yes (Death)
  Sender: FDA-Public Use
  Company Number: 2008-00729

PATIENT
  Age: 10 Year
  Sex: Female

DRUGS (3)
  1. PENICILLIN G POTASSIUM [Suspect]
  2. MUSHROOMS-CYCLOPEPTIDES() [Suspect]
  3. CHARCOAL, ACTIVATED(CHARCOAL, ACTIVATED) [Suspect]

REACTIONS (1)
  - DEATH [None]
